FAERS Safety Report 5915142-9 (Version None)
Quarter: 2008Q4

REPORT INFORMATION
  Report Type: 
  Country: None (occurrence: None)
  Receive Date: 20081010
  Receipt Date: 20081002
  Transmission Date: 20090506
  Serious: Yes (Hospitalization)
  Sender: FDA-Public Use
  Company Number: PHHO2008FR11550

PATIENT
  Sex: Female
  Weight: 67 kg

DRUGS (1)
  1. CGS 20267 T30748+ [Suspect]
     Indication: BREAST CANCER
     Dosage: 2.5 MG, QD
     Route: 048
     Dates: start: 20040819

REACTIONS (3)
  - BILIARY COLIC [None]
  - CHOLECYSTECTOMY [None]
  - CHOLELITHIASIS [None]
